FAERS Safety Report 11914899 (Version 1)
Quarter: 2016Q1

REPORT INFORMATION
  Report Type: Spontaneous
  Country: JP (occurrence: JP)
  Receive Date: 20160113
  Receipt Date: 20160113
  Transmission Date: 20160526
  Serious: Yes (Other)
  Sender: FDA-Public Use
  Company Number: JP-CORDEN PHARMA LATINA S.P.A.-JP-2015COR000434

PATIENT
  Age: 47 Year
  Sex: Male

DRUGS (12)
  1. ETOPOSIDE. [Suspect]
     Active Substance: ETOPOSIDE
     Indication: MYELOID LEUKAEMIA
     Dosage: 210 MG/BODY, ON DAYS 1 TO 5
  2. CYTARABINE. [Suspect]
     Active Substance: CYTARABINE
     Dosage: 420 MG/BODY, ON DAYS 1 TO 5
  3. CYTARABINE. [Suspect]
     Active Substance: CYTARABINE
     Indication: MYELOID LEUKAEMIA
     Dosage: 220 MG/BODY, ON DAYS 1 TO 7
  4. DAUNORUBICIN [Suspect]
     Active Substance: DAUNORUBICIN
     Indication: MYELOID LEUKAEMIA
     Dosage: 100 MG/BODY, ON DAYS 1 TO 3
  5. IDARUBICIN [Suspect]
     Active Substance: IDARUBICIN
     Indication: MYELOID LEUKAEMIA
     Dosage: 25 MG/BODY, ON DAYS 1 TO 3
  6. ACLARUBICIN [Suspect]
     Active Substance: ACLARUBICIN
     Indication: MYELOID LEUKAEMIA
     Dosage: 40 MG/BODY ON DAYS 1 TO 5
  7. VINDESINE [Suspect]
     Active Substance: VINDESINE
     Indication: MYELOID LEUKAEMIA
     Dosage: 4.2 MG/BODY, ON DAY 10
  8. CYTARABINE. [Suspect]
     Active Substance: CYTARABINE
     Dosage: 460 MG/BODY, ON DAYS 1 TO 5
  9. CYTARABINE. [Suspect]
     Active Substance: CYTARABINE
     Dosage: 440 MG/BODY, ON DAYS 1 TO 7
  10. CYTARABINE. [Suspect]
     Active Substance: CYTARABINE
     Dosage: 440 MG/BODY ON DAYS 1 TO 5
  11. MITOXANTRONE [Suspect]
     Active Substance: MITOXANTRONE HYDROCHLORIDE
     Indication: MYELOID LEUKAEMIA
     Dosage: 16 MG/BODY, ON DAYS 1 TO 3
  12. VINCRISTINE [Suspect]
     Active Substance: VINCRISTINE
     Indication: MYELOID LEUKAEMIA
     Dosage: 1.7 MG/BODY, ON DAY 8

REACTIONS (1)
  - Febrile neutropenia [Recovering/Resolving]
